FAERS Safety Report 15917651 (Version 1)
Quarter: 2019Q1

REPORT INFORMATION
  Report Type: Report from Study
  Country: US (occurrence: US)
  Receive Date: 20190205
  Receipt Date: 20190205
  Transmission Date: 20190417
  Serious: Yes (Other)
  Sender: FDA-Public Use
  Company Number: US-AMGEN INC.-USASL2019010104

PATIENT
  Age: 45 Year
  Sex: Female
  Weight: 54.88 kg

DRUGS (1)
  1. AIMOVIG [Suspect]
     Active Substance: ERENUMAB-AOOE
     Indication: MIGRAINE WITHOUT AURA
     Dosage: 70 MG, UNK
     Route: 065
     Dates: start: 2018

REACTIONS (4)
  - Dyspepsia [Unknown]
  - Constipation [Recovered/Resolved]
  - Ill-defined disorder [Unknown]
  - Hypoaesthesia [Unknown]
